FAERS Safety Report 18512592 (Version 1)
Quarter: 2020Q4

REPORT INFORMATION
  Report Type: Spontaneous
  Country: IT (occurrence: IT)
  Receive Date: 20201117
  Receipt Date: 20201117
  Transmission Date: 20210114
  Serious: Yes (Hospitalization)
  Sender: FDA-Public Use
  Company Number: IT-TEVA-2020-IT-1848922

PATIENT
  Age: 67 Year
  Sex: Female

DRUGS (2)
  1. ARACYTIN [Suspect]
     Active Substance: CYTARABINE
     Indication: NON-HODGKIN^S LYMPHOMA
     Dosage: 1.6 MG
     Route: 042
     Dates: start: 20200511, end: 20200710
  2. METOTRESSATO TEVA [Suspect]
     Active Substance: METHOTREXATE SODIUM
     Indication: NON-HODGKIN^S LYMPHOMA
     Dosage: 5.5 GRAM
     Route: 042
     Dates: start: 20200511, end: 20200708

REACTIONS (5)
  - Mucosal inflammation [Recovering/Resolving]
  - Neutropenia [Recovering/Resolving]
  - Bacteraemia [Recovering/Resolving]
  - Thrombocytopenia [Recovering/Resolving]
  - Anaemia [Recovering/Resolving]

NARRATIVE: CASE EVENT DATE: 20200709
